FAERS Safety Report 22114439 (Version 4)
Quarter: 2025Q3

REPORT INFORMATION
  Report Type: Spontaneous
  Country: CH (occurrence: CH)
  Receive Date: 20230320
  Receipt Date: 20250929
  Transmission Date: 20251020
  Serious: Yes (Other)
  Sender: AMGEN
  Company Number: CH-002147023-NVSC2023CH058663

PATIENT
  Age: 67 Year
  Sex: Female

DRUGS (1)
  1. ERENUMAB [Suspect]
     Active Substance: ERENUMAB
     Indication: Product used for unknown indication
     Route: 065

REACTIONS (3)
  - Protein S deficiency [Unknown]
  - Injection site bruising [Unknown]
  - Device malfunction [Unknown]
